FAERS Safety Report 18433054 (Version 2)
Quarter: 2020Q4

REPORT INFORMATION
  Report Type: Spontaneous
  Country: DE (occurrence: DE)
  Receive Date: 20201027
  Receipt Date: 20201102
  Transmission Date: 20210114
  Serious: Yes (Other)
  Sender: FDA-Public Use
  Company Number: DE-ALLERGAN-2040616US

PATIENT
  Sex: Male
  Weight: 87 kg

DRUGS (1)
  1. LUMIGAN [Suspect]
     Active Substance: BIMATOPROST
     Indication: CATARACT
     Dosage: 0,3 MG/ML EDO (1 X DAILY)
     Route: 047
     Dates: start: 20160101, end: 20200901

REACTIONS (3)
  - Visual impairment [Recovered/Resolved]
  - Cataract [Recovered/Resolved]
  - Off label use [Unknown]

NARRATIVE: CASE EVENT DATE: 20160101
